FAERS Safety Report 8476247-4 (Version None)
Quarter: 2012Q2

REPORT INFORMATION
  Report Type: 
  Country: None (occurrence: None)
  Receive Date: 20120622
  Receipt Date: 20120615
  Transmission Date: 20120825
  Serious: Yes (Death, Hospitalization)
  Sender: FDA-Public Use
  Company Number: 2012SP016965

PATIENT
  Age: 61 Year
  Sex: Male

DRUGS (10)
  1. OMEPRAZOLE [Concomitant]
  2. GLICLAZIDE [Concomitant]
  3. CLOBAZAM [Concomitant]
  4. TEMOZOLOMIDE [Suspect]
     Indication: GLIOBLASTOMA
     Dosage: 200 MG;PO 200 MG/M2;PO
     Route: 048
     Dates: start: 20120228, end: 20120303
  5. LEVETIRACETAM [Concomitant]
  6. IMA950 (VACCINES) [Suspect]
     Indication: GLIOBLASTOMA
     Dosage: , 4.96 MG;ID, , 4.96 MG;ID
     Dates: start: 20120221, end: 20120221
  7. IMA950 (VACCINES) [Suspect]
     Indication: GLIOBLASTOMA
     Dosage: , 4.96 MG;ID, , 4.96 MG;ID
     Dates: start: 20120103, end: 20120103
  8. LEUKINE [Suspect]
     Indication: GLIOBLASTOMA
     Dosage: 75 MCG;ID, 75 MCG;ID
     Dates: start: 20120221, end: 20120221
  9. LEUKINE [Suspect]
     Indication: GLIOBLASTOMA
     Dosage: 75 MCG;ID, 75 MCG;ID
     Dates: start: 20120103, end: 20120103
  10. DEXAMETHASONE [Concomitant]

REACTIONS (10)
  - FATIGUE [None]
  - PULMONARY EMBOLISM [None]
  - APHASIA [None]
  - TREMOR [None]
  - PAIN IN EXTREMITY [None]
  - MUSCULAR WEAKNESS [None]
  - PURPURA [None]
  - VOMITING [None]
  - DIARRHOEA [None]
  - LOWER RESPIRATORY TRACT INFECTION [None]
